FAERS Safety Report 5464872-4 (Version None)
Quarter: 2007Q3

REPORT INFORMATION
  Report Type: 
  Country: None (occurrence: None)
  Receive Date: 20070921
  Receipt Date: 20070910
  Transmission Date: 20080115
  Serious: Yes (Hospitalization)
  Sender: FDA-Public Use
  Company Number: FR-PFIZER INC-2007076298

PATIENT
  Sex: Female

DRUGS (10)
  1. LYRICA [Suspect]
     Indication: NEURALGIA
     Route: 048
     Dates: start: 20070625, end: 20070627
  2. TOPALGIC [Suspect]
     Indication: NEURALGIA
     Route: 048
     Dates: start: 20070620, end: 20070627
  3. LEXOMIL [Suspect]
     Indication: ANXIETY
     Route: 048
  4. FENTANYL [Concomitant]
     Route: 062
  5. ZELITREX [Concomitant]
  6. COTRIM [Concomitant]
  7. CACIT D3 [Concomitant]
  8. ALENDRONIC ACID [Concomitant]
  9. MAGNESIUM CARBONATE [Concomitant]
  10. INEXIUM [Concomitant]

REACTIONS (3)
  - ALTERED STATE OF CONSCIOUSNESS [None]
  - CONFUSIONAL STATE [None]
  - URINARY RETENTION [None]
